FAERS Safety Report 8407358-7 (Version None)
Quarter: 2012Q2

REPORT INFORMATION
  Report Type: 
  Country: None (occurrence: None)
  Receive Date: 20120604
  Receipt Date: 20120521
  Transmission Date: 20120825
  Serious: Yes (Other)
  Sender: FDA-Public Use
  Company Number: US-ELI_LILLY_AND_COMPANY-US201204005049

PATIENT
  Age: 65 Year
  Sex: Female

DRUGS (8)
  1. ZESTORETIC [Concomitant]
     Indication: HYPERTENSION
  2. NEURONTIN                               /USA/ [Concomitant]
  3. CYMBALTA [Suspect]
     Indication: NEUROPATHY PERIPHERAL
     Dosage: 30 MG, BID
     Dates: start: 20100101
  4. ZEBETA [Concomitant]
  5. SYNTHROID [Concomitant]
  6. ALLOPURINOL [Concomitant]
  7. ESTRACE [Concomitant]
     Indication: HORMONE THERAPY
  8. LASIX                                   /USA/ [Concomitant]

REACTIONS (3)
  - DERMATITIS BULLOUS [None]
  - OFF LABEL USE [None]
  - UNEVALUABLE EVENT [None]
